FAERS Safety Report 6992995-7 (Version None)
Quarter: 2010Q3

REPORT INFORMATION
  Report Type: 
  Country: None (occurrence: None)
  Receive Date: 20100917
  Receipt Date: 20100916
  Transmission Date: 20110219
  Serious: Yes (Other)
  Sender: FDA-Public Use
  Company Number: GB-BRISTOL-MYERS SQUIBB COMPANY-15283039

PATIENT
  Age: 63 Year
  Sex: Male

DRUGS (4)
  1. WARFARIN SODIUM [Suspect]
     Indication: PULMONARY EMBOLISM
  2. HEPARIN SODIUM [Suspect]
     Indication: PULMONARY EMBOLISM
  3. FLUCLOXACILLIN [Suspect]
     Indication: ANTIBIOTIC PROPHYLAXIS
     Route: 042
  4. GENTAMICIN [Suspect]
     Indication: ANTIBIOTIC PROPHYLAXIS
     Route: 042

REACTIONS (1)
  - POROKERATOSIS [None]
